FAERS Safety Report 9518992 (Version 1)
Quarter: 2013Q3

REPORT INFORMATION
  Report Type: Spontaneous
  Country: US (occurrence: None)
  Receive Date: 20130911
  Receipt Date: 20130911
  Transmission Date: 20140515
  Serious: Yes (Death)
  Sender: FDA-Public Use
  Company Number: None

PATIENT
  Sex: Female

DRUGS (1)
  1. REVLIMID [Suspect]
     Indication: PLASMA CELL MYELOMA
     Dosage: 25MG (3 WEEKS ON, 1 WEEK OFF) QD PO
     Route: 048
     Dates: start: 20130730

REACTIONS (2)
  - Plasma cell myeloma [None]
  - Unevaluable event [None]
